FAERS Safety Report 23487020 (Version 1)
Quarter: 2024Q1

REPORT INFORMATION
  Report Type: Report from Study
  Country: US (occurrence: US)
  Receive Date: 20240206
  Receipt Date: 20240206
  Transmission Date: 20240409
  Serious: No
  Sender: FDA-Public Use
  Company Number: US-BIOVITRUM-2024-US-001746

PATIENT
  Age: 11 Month
  Sex: Female

DRUGS (2)
  1. SYNAGIS [Suspect]
     Active Substance: PALIVIZUMAB
     Indication: Low birth weight baby
     Dosage: ONCE PER MONTH?50MG/0.5ML
     Route: 030
     Dates: start: 202311
  2. SYNAGIS [Suspect]
     Active Substance: PALIVIZUMAB
     Indication: Premature baby
     Dosage: ONCE PER MONTH?100MG/ML
     Route: 030
     Dates: start: 202311

REACTIONS (1)
  - Pyrexia [Unknown]
